FAERS Safety Report 9965011 (Version 2)
Quarter: 2014Q2

REPORT INFORMATION
  Report Type: Spontaneous
  Country: GB (occurrence: GB)
  Receive Date: 20140305
  Receipt Date: 20140602
  Transmission Date: 20141212
  Serious: Yes (Disabling, Other)
  Sender: FDA-Public Use
  Company Number: PHHY2014GB023212

PATIENT
  Age: 93 Year
  Sex: Female
  Weight: 44.45 kg

DRUGS (5)
  1. CO-CODAMOL [Suspect]
     Indication: ANALGESIC THERAPY
     Dosage: 8MG/500MG
     Route: 048
     Dates: start: 20140203, end: 20140208
  2. CLENIL MODULITE [Concomitant]
  3. CO-AMILOFRUSE [Concomitant]
  4. VENTOLIN [Concomitant]
  5. ZOPICLONE [Concomitant]

REACTIONS (11)
  - Vision blurred [Not Recovered/Not Resolved]
  - Colour blindness acquired [Not Recovered/Not Resolved]
  - Dehydration [Not Recovered/Not Resolved]
  - Fluid retention [Not Recovered/Not Resolved]
  - Dysuria [Not Recovered/Not Resolved]
  - Malaise [Not Recovered/Not Resolved]
  - Joint swelling [Not Recovered/Not Resolved]
  - Heart rate decreased [Not Recovered/Not Resolved]
  - Urticaria [Not Recovered/Not Resolved]
  - Tremor [Not Recovered/Not Resolved]
  - Dry mouth [Not Recovered/Not Resolved]
